FAERS Safety Report 12764067 (Version 2)
Quarter: 2016Q3

REPORT INFORMATION
  Report Type: Spontaneous
  Country: GB (occurrence: GB)
  Receive Date: 20160920
  Receipt Date: 20160921
  Transmission Date: 20161109
  Serious: Yes (Other)
  Sender: FDA-Public Use
  Company Number: GB-SA-2015SA056865

PATIENT
  Sex: Male

DRUGS (1)
  1. CLEXANE [Suspect]
     Active Substance: ENOXAPARIN SODIUM
     Indication: EXPOSURE DURING BREAST FEEDING
     Route: 063

REACTIONS (4)
  - Growth retardation [Unknown]
  - Foetal exposure during pregnancy [Unknown]
  - Weight decreased [Unknown]
  - Exposure during breast feeding [Unknown]
